FAERS Safety Report 6347710-7 (Version None)
Quarter: 2009Q3

REPORT INFORMATION
  Report Type: 
  Country: None (occurrence: None)
  Receive Date: 20090910
  Receipt Date: 20090901
  Transmission Date: 20100115
  Serious: Yes (Other)
  Sender: FDA-Public Use
  Company Number: BR-JNJFOC-20090902347

PATIENT
  Sex: Female

DRUGS (5)
  1. ULTRACET [Suspect]
     Indication: DRUG USE FOR UNKNOWN INDICATION
  2. METFORMIN HCL [Concomitant]
  3. SIMVASTATIN [Concomitant]
  4. OLMESARTAN MEDOXOMIL [Concomitant]
     Indication: HYPERTENSION
  5. AMLODIPINE [Concomitant]

REACTIONS (5)
  - BLOOD PRESSURE ABNORMAL [None]
  - DIZZINESS [None]
  - METABOLIC DISORDER [None]
  - SOMNOLENCE [None]
  - SYNCOPE [None]
